FAERS Safety Report 20295496 (Version 1)
Quarter: 2022Q1

REPORT INFORMATION
  Report Type: Spontaneous
  Country: US (occurrence: US)
  Receive Date: 20220104
  Receipt Date: 20220104
  Transmission Date: 20220423
  Serious: Yes (Disabling, Other)
  Sender: FDA-Public Use
  Company Number: US-PURDUE-USA-2020-0273414

PATIENT
  Sex: Male

DRUGS (3)
  1. OXYCONTIN [Suspect]
     Active Substance: OXYCODONE HYDROCHLORIDE
     Indication: Product used for unknown indication
     Dosage: UNKNOWN
     Route: 048
     Dates: start: 1999
  2. SUBOXONE [Suspect]
     Active Substance: BUPRENORPHINE HYDROCHLORIDE\NALOXONE HYDROCHLORIDE
     Indication: Product used for unknown indication
     Dosage: UNKNOWN
     Route: 065
  3. HEROIN [Suspect]
     Active Substance: DIAMORPHINE
     Indication: Product used for unknown indication
     Dosage: UNKNOWN
     Route: 065

REACTIONS (20)
  - Overdose [Unknown]
  - Drug dependence [Unknown]
  - Somnolence [Unknown]
  - Confusional state [Unknown]
  - Nausea [Unknown]
  - Constipation [Unknown]
  - Hyperaesthesia [Unknown]
  - Respiratory rate decreased [Unknown]
  - Drug withdrawal syndrome [Unknown]
  - Myalgia [Unknown]
  - Bone pain [Unknown]
  - Sleep disorder [Unknown]
  - Diarrhoea [Unknown]
  - Vomiting [Unknown]
  - Cold sweat [Unknown]
  - Nasopharyngitis [Unknown]
  - Influenza like illness [Unknown]
  - Decreased appetite [Unknown]
  - Anxiety [Unknown]
  - Depression [Unknown]

NARRATIVE: CASE EVENT DATE: 20120101
